FAERS Safety Report 5472402-6 (Version None)
Quarter: 2007Q4

REPORT INFORMATION
  Report Type: 
  Country: None (occurrence: None)
  Receive Date: 20071001
  Receipt Date: 20070918
  Transmission Date: 20080405
  Serious: Yes (Other)
  Sender: FDA-Public Use
  Company Number: US-BAYER-200711336BWH

PATIENT
  Age: 69 Year
  Sex: Male
  Weight: 73 kg

DRUGS (14)
  1. NEXAVAR [Suspect]
     Indication: RENAL CELL CARCINOMA STAGE UNSPECIFIED
     Dosage: TOTAL DAILY DOSE: 800 MG  UNIT DOSE: 200 MG
     Route: 048
     Dates: start: 20060204, end: 20070823
  2. GLUCOSAMINE/CONTRITIM [Concomitant]
  3. GLIPIZIDE [Concomitant]
  4. ACTOS [Concomitant]
  5. ECOTRIN [Concomitant]
  6. LIPITOR [Concomitant]
  7. CARDIZEM [Concomitant]
  8. LANOXIN [Concomitant]
  9. ZETIA [Concomitant]
  10. LISINOPRIL [Concomitant]
     Dates: end: 20070510
  11. AVAPRO [Concomitant]
  12. TOPROL-XL [Concomitant]
  13. LANTUS [Concomitant]
     Route: 058
  14. LOMOTIL [Concomitant]
     Indication: DIARRHOEA

REACTIONS (15)
  - ANOREXIA [None]
  - ASTHENIA [None]
  - CHOKING [None]
  - COUGH [None]
  - DIARRHOEA [None]
  - DRY SKIN [None]
  - DRY THROAT [None]
  - DYSPHONIA [None]
  - DYSPNOEA EXERTIONAL [None]
  - FATIGUE [None]
  - GASTROOESOPHAGEAL REFLUX DISEASE [None]
  - MALAISE [None]
  - RENAL CELL CARCINOMA STAGE UNSPECIFIED [None]
  - RETCHING [None]
  - THROAT IRRITATION [None]
